FAERS Safety Report 7492762-4 (Version None)
Quarter: 2011Q2

REPORT INFORMATION
  Report Type: 
  Country: None (occurrence: None)
  Receive Date: 20110519
  Receipt Date: 20110413
  Transmission Date: 20111010
  Serious: Yes (Other)
  Sender: FDA-Public Use
  Company Number: US-BAYER-200834376NA

PATIENT
  Sex: Male

DRUGS (21)
  1. AMLODIPINE [Concomitant]
  2. MAGNEVIST [Suspect]
  3. LISINOPRIL [Concomitant]
  4. JANUVIA [Concomitant]
  5. GLUCOPHAGE [Concomitant]
  6. CELEBREX [Concomitant]
  7. MAGNEVIST [Suspect]
  8. BYSTOLIC [Concomitant]
  9. NOVOLOG [Concomitant]
  10. AVANDAMET [Concomitant]
  11. METOPROLOL TARTRATE [Concomitant]
  12. WARFARIN SODIUM [Concomitant]
  13. IRON [CITRIC ACID,FERROUS SULFATE] [Concomitant]
  14. ZESTORETIC [Concomitant]
  15. METFORMIN HCL [Concomitant]
  16. PREDNISONE [Concomitant]
  17. GLYBURIDE [Concomitant]
  18. AVAPRO [Concomitant]
  19. MAGNEVIST [Suspect]
     Indication: NUCLEAR MAGNETIC RESONANCE IMAGING
  20. FUROSEMIDE [Concomitant]
  21. HYDROCHLOROTHIAZIDE [Concomitant]

REACTIONS (14)
  - GENERAL PHYSICAL HEALTH DETERIORATION [None]
  - INJURY [None]
  - FIBROSIS [None]
  - EMOTIONAL DISTRESS [None]
  - SKIN FIBROSIS [None]
  - MOBILITY DECREASED [None]
  - SWELLING [None]
  - GAIT DISTURBANCE [None]
  - NEPHROGENIC SYSTEMIC FIBROSIS [None]
  - PAIN [None]
  - ANXIETY [None]
  - SKIN DISCOLOURATION [None]
  - PAIN IN EXTREMITY [None]
  - SKIN EXFOLIATION [None]
